FAERS Safety Report 12267936 (Version 1)
Quarter: 2016Q2

REPORT INFORMATION
  Report Type: Not Available
  Country: None (occurrence: US)
  Receive Date: 20160414
  Receipt Date: 20160414
  Transmission Date: 20160815
  Serious: No
  Sender: FDA-Public Use
  Company Number: US-AKORN-14181

PATIENT
  Age: 62 Year
  Sex: Female

DRUGS (1)
  1. AZASITE [Suspect]
     Active Substance: AZITHROMYCIN MONOHYDRATE

REACTIONS (3)
  - Dysgeusia [Recovered/Resolved]
  - Eye pain [Recovered/Resolved]
  - Oral discomfort [Recovered/Resolved]
